FAERS Safety Report 13949910 (Version 1)
Quarter: 2017Q3

REPORT INFORMATION
  Report Type: Report from Study
  Country: US (occurrence: US)
  Receive Date: 20170908
  Receipt Date: 20170908
  Transmission Date: 20171128
  Serious: Yes (Other)
  Sender: FDA-Public Use
  Company Number: US-ALEXION PHARMACEUTICALS INC.-A201709845

PATIENT
  Sex: Male

DRUGS (1)
  1. STRENSIQ [Suspect]
     Active Substance: ASFOTASE ALFA
     Indication: HYPOPHOSPHATASIA
     Route: 058

REACTIONS (11)
  - Depression [Unknown]
  - Fibula fracture [Unknown]
  - Pain [Unknown]
  - Ligament sprain [Unknown]
  - Anxiety [Unknown]
  - Renal impairment [Unknown]
  - Mental impairment [Unknown]
  - Nephrolithiasis [Unknown]
  - Asthenia [Unknown]
  - Fatigue [Unknown]
  - Ligament rupture [Unknown]
